FAERS Safety Report 4872874-1 (Version None)
Quarter: 2006Q1

REPORT INFORMATION
  Report Type: 
  Country: None (occurrence: None)
  Receive Date: 20060105
  Receipt Date: 20040630
  Transmission Date: 20060701
  Serious: No
  Sender: FDA-Public Use
  Company Number: US-BRISTOL-MYERS SQUIBB COMPANY-12629994

PATIENT
  Age: 41 Year
  Sex: Female
  Weight: 83 kg

DRUGS (7)
  1. SERZONE [Suspect]
     Indication: DEPRESSION
     Dosage: DURATION OF THERAPY:  SEVERAL MONTHS.
     Route: 048
     Dates: start: 20040331, end: 20050101
  2. SERZONE [Suspect]
     Indication: ANGER
     Dosage: DURATION OF THERAPY:  SEVERAL MONTHS.
     Route: 048
     Dates: start: 20040331, end: 20050101
  3. IBUPROFEN [Concomitant]
  4. VALIUM [Concomitant]
  5. FLONASE [Concomitant]
  6. PHENERGAN [Concomitant]
  7. ZOLOFT [Concomitant]
     Dosage: ^JUST^ TAKEN OFF SERZONE AND STARTED ON ZOLOFT.

REACTIONS (11)
  - ABDOMINAL PAIN UPPER [None]
  - ANOREXIA [None]
  - CHILLS [None]
  - COLD SWEAT [None]
  - FEELING JITTERY [None]
  - LETHARGY [None]
  - LIVER DISORDER [None]
  - NAUSEA [None]
  - PANIC ATTACK [None]
  - SOMNOLENCE [None]
  - WEIGHT DECREASED [None]
